FAERS Safety Report 9124704 (Version 1)
Quarter: 2013Q1

REPORT INFORMATION
  Report Type: Spontaneous
  Country: DE (occurrence: DE)
  Receive Date: 20130227
  Receipt Date: 20130227
  Transmission Date: 20140127
  Serious: Yes (Hospitalization)
  Sender: FDA-Public Use
  Company Number: PHHY2013DE017718

PATIENT
  Age: 8 Year
  Sex: Male

DRUGS (8)
  1. RITALIN LA [Suspect]
     Dosage: 40 MG, BID
     Route: 048
     Dates: start: 20120516
  2. STRATTERA [Suspect]
     Indication: ATTENTION DEFICIT/HYPERACTIVITY DISORDER
     Dosage: 18 MG, QD
     Route: 048
     Dates: start: 20120410, end: 20120416
  3. STRATTERA [Suspect]
     Dosage: 25 MG, QD
     Route: 048
     Dates: start: 20120417, end: 20120423
  4. STRATTERA [Suspect]
     Dosage: 40 MG, QD
     Route: 048
     Dates: start: 20120424, end: 20120511
  5. STRATTERA [Suspect]
     Dosage: 50 MG, QD
     Route: 048
     Dates: start: 20120512, end: 20120514
  6. STRATTERA [Suspect]
     Dosage: 25 MG, QD
     Route: 048
     Dates: start: 20120515, end: 20120518
  7. MEDIKINET [Suspect]
     Dosage: UNK UKN, UNK
     Route: 048
     Dates: start: 20120404, end: 20120424
  8. MEDIKINET [Suspect]
     Dosage: UNK UKN, UNK
     Route: 048
     Dates: start: 20120425, end: 20120515

REACTIONS (1)
  - Restlessness [Recovered/Resolved]
